FAERS Safety Report 9153470 (Version 1)
Quarter: 2013Q1

REPORT INFORMATION
  Report Type: Spontaneous
  Country: US (occurrence: None)
  Receive Date: 20130306
  Receipt Date: 20130306
  Transmission Date: 20140127
  Serious: Yes (Other)
  Sender: FDA-Public Use
  Company Number: None

PATIENT
  Age: 33 Year
  Sex: Female
  Weight: 72.58 kg

DRUGS (1)
  1. NEXIUM [Suspect]

REACTIONS (4)
  - Muscle twitching [None]
  - Pain in extremity [None]
  - Arthralgia [None]
  - Muscular weakness [None]
